FAERS Safety Report 7946940-8 (Version None)
Quarter: 2011Q4

REPORT INFORMATION
  Report Type: 
  Country: None (occurrence: None)
  Receive Date: 20111129
  Receipt Date: 20111122
  Transmission Date: 20120403
  Serious: Yes (Other)
  Sender: FDA-Public Use
  Company Number: US-ASTRAZENECA-2011SE71174

PATIENT
  Age: 60 Year
  Sex: Male

DRUGS (1)
  1. SYMBICORT [Suspect]
     Route: 055

REACTIONS (5)
  - DIARRHOEA [None]
  - SYNCOPE [None]
  - MYOCARDIAL INFARCTION [None]
  - ESCHERICHIA INFECTION [None]
  - PNEUMONIA [None]
